FAERS Safety Report 4345332-0 (Version None)
Quarter: 2004Q2

REPORT INFORMATION
  Report Type: 
  Country: None (occurrence: None)
  Receive Date: 20040420
  Receipt Date: 20040408
  Transmission Date: 20050107
  Serious: Yes (Death, Hospitalization)
  Sender: FDA-Public Use
  Company Number: 163-20785-04040190

PATIENT
  Age: 46 Year
  Sex: Male
  Weight: 108.8633 kg

DRUGS (20)
  1. THALOMID [Suspect]
     Indication: GLIOBLASTOMA
     Dosage: 200 MG, DAILY, ORAL
     Route: 048
     Dates: start: 20040225, end: 20040307
  2. IRINOTECAN (IRINOTECAN) [Suspect]
     Indication: GLIOBLASTOMA
     Dosage: 284 MG,  Q WEEKLY, INTRAVENOUS
     Route: 042
     Dates: start: 20040225, end: 20040303
  3. MEGACE [Concomitant]
  4. MAXIPIME [Concomitant]
  5. ZOFRAN [Concomitant]
  6. PROTONIX [Concomitant]
  7. VANCOMYCIN [Concomitant]
  8. KEPPRA [Concomitant]
  9. ALBUMIN (HUMAN) [Concomitant]
  10. DEXAMETHASONE [Concomitant]
  11. NEUPOGEN [Concomitant]
  12. FLORINEF [Concomitant]
  13. LOVENOX [Concomitant]
  14. SANDOSTATIN [Concomitant]
  15. HYDROCODONE (HYDROCODONE) [Concomitant]
  16. CELEXA [Concomitant]
  17. PEPCID [Concomitant]
  18. SPIRONOLACTONE [Concomitant]
  19. VIOXX [Concomitant]
  20. COUMADIN [Concomitant]

REACTIONS (19)
  - ABDOMINAL PAIN [None]
  - ANOREXIA [None]
  - BLOOD UREA DECREASED [None]
  - CARDIOMEGALY [None]
  - COLITIS [None]
  - COMPUTERISED TOMOGRAM ABNORMAL [None]
  - DEEP VEIN THROMBOSIS [None]
  - DEHYDRATION [None]
  - HEPATIC STEATOSIS [None]
  - HYPOTENSION [None]
  - HYPOVOLAEMIA [None]
  - ILIAC VEIN THROMBOSIS [None]
  - OEDEMA PERIPHERAL [None]
  - PANCYTOPENIA [None]
  - PERICARDIAL EFFUSION [None]
  - PYREXIA [None]
  - RENAL FAILURE [None]
  - SINUS BRADYCARDIA [None]
  - URINE OUTPUT DECREASED [None]
